FAERS Safety Report 6663242-0 (Version None)
Quarter: 2010Q2

REPORT INFORMATION
  Report Type: 
  Country: None (occurrence: None)
  Receive Date: 20100401
  Receipt Date: 20100330
  Transmission Date: 20101027
  Serious: Yes (Death)
  Sender: FDA-Public Use
  Company Number: PHEH2010US02135

PATIENT
  Sex: Female
  Weight: 62.2 kg

DRUGS (17)
  1. FEMARA [Suspect]
     Indication: BREAST CANCER FEMALE
     Dosage: 2.5 MG, QD
     Route: 048
     Dates: start: 20080214
  2. LEVOTHYROXINE SODIUM [Concomitant]
     Dosage: 175 MG EVERY DAY
  3. URSODIOL [Concomitant]
     Dosage: 300 MG, BID
  4. ESOMEPRAZOLE MAGNESIUM [Concomitant]
     Dosage: 40 MG EVERY DAY
  5. FUROSEMIDE [Concomitant]
     Dosage: 40 MG, BID
  6. IRBESARTAN [Concomitant]
     Dosage: 300 MG EVERY DAT
  7. ASPIRIN [Concomitant]
     Dosage: 81 MG EVERY DAY
  8. CLOPIDOGREL BISULFATE [Concomitant]
     Dosage: 75 MG EVERY DAY
  9. CARVEDILOL [Concomitant]
     Dosage: 12.5 MG EVERY DAY
  10. SIMVASTATIN [Concomitant]
     Dosage: 20 MG EVERY DAY
  11. LISINOPRIL [Concomitant]
     Dosage: 40 MG EVERY DAY
  12. MAGNESIUM [Concomitant]
     Dosage: 400 MG EVERY DAY
     Route: 048
  13. MONTELUKAST SODIUM [Concomitant]
     Dosage: 10 MG EVERY DAY
  14. FLUTICASONE W/SALMETEROL [Concomitant]
     Dosage: 250 MG, BID
  15. KLOR-CON [Concomitant]
     Dosage: 20 MG, BID
  16. NITROGLYCERIN [Concomitant]
     Dosage: 0.4 MG, PRN
  17. ALBUTEROL SULFATE AND IPRATROPIUM BROMIDE [Concomitant]
     Dosage: AS NEEDED

REACTIONS (1)
  - DEATH [None]
